FAERS Safety Report 13984711 (Version 2)
Quarter: 2017Q4

REPORT INFORMATION
  Report Type: Spontaneous
  Country: US (occurrence: US)
  Receive Date: 20170918
  Receipt Date: 20171002
  Transmission Date: 20180321
  Serious: Yes (Hospitalization)
  Sender: FDA-Public Use
  Company Number: US-VIFOR (INTERNATIONAL) INC.-VIT-2017-09429

PATIENT
  Age: 74 Year
  Sex: Male

DRUGS (16)
  1. LORTAB [Concomitant]
     Active Substance: ACETAMINOPHEN\HYDROCODONE BITARTRATE
  2. ASPIRIN. [Concomitant]
     Active Substance: ASPIRIN
  3. DEXILANT [Concomitant]
     Active Substance: DEXLANSOPRAZOLE
  4. TESSALON [Concomitant]
     Active Substance: BENZONATATE
  5. METOPROLOL TARTRATE. [Concomitant]
     Active Substance: METOPROLOL TARTRATE
  6. PARACETAMOL~~HYDROCODONE BITARTRATE [Concomitant]
  7. CLOPIDOGREL BISULFATE. [Concomitant]
     Active Substance: CLOPIDOGREL BISULFATE
  8. VELTASSA [Suspect]
     Active Substance: PATIROMER
     Indication: HYPERKALAEMIA
     Route: 048
     Dates: start: 20161126, end: 2017
  9. ZITROMAX [Concomitant]
     Active Substance: AZITHROMYCIN
  10. NOVOLOG [Concomitant]
     Active Substance: INSULIN ASPART
  11. LIDOCAINE~~PRILOCAINE [Concomitant]
  12. DOCUSATE SODIUM. [Concomitant]
     Active Substance: DOCUSATE SODIUM
  13. ATORVASTATIN CALCIUM. [Concomitant]
     Active Substance: ATORVASTATIN CALCIUM
  14. RENVELA [Concomitant]
     Active Substance: SEVELAMER CARBONATE
  15. MIDODRINE HYDROCHLORIDE. [Concomitant]
     Active Substance: MIDODRINE HYDROCHLORIDE
  16. LANTUS [Concomitant]
     Active Substance: INSULIN GLARGINE

REACTIONS (1)
  - Surgery [Unknown]

NARRATIVE: CASE EVENT DATE: 20170922
